FAERS Safety Report 4854411-0 (Version None)
Quarter: 2005Q4

REPORT INFORMATION
  Report Type: 
  Country: None (occurrence: None)
  Receive Date: 20051214
  Receipt Date: 20051214
  Transmission Date: 20060501
  Serious: Yes (Other)
  Sender: FDA-Public Use
  Company Number: None

PATIENT
  Sex: Male
  Weight: 81.7 kg

DRUGS (1)
  1. ETOPOSIDE [Suspect]
     Indication: ACUTE LYMPHOCYTIC LEUKAEMIA
     Dosage: SEE IMAGE
     Dates: start: 20051130, end: 20051203

REACTIONS (7)
  - HAEMOLYSIS [None]
  - HYPERTENSION [None]
  - NAUSEA [None]
  - TRANSFUSION REACTION [None]
  - TRANSFUSION WITH INCOMPATIBLE BLOOD [None]
  - URTICARIA [None]
  - VOMITING [None]
